FAERS Safety Report 23424266 (Version 1)
Quarter: 2024Q1

REPORT INFORMATION
  Report Type: Spontaneous
  Country: US (occurrence: US)
  Receive Date: 20240120
  Receipt Date: 20240120
  Transmission Date: 20240409
  Serious: No
  Sender: FDA-Public Use
  Company Number: US-AUROBINDO-AUR-APL-2023-042421

PATIENT
  Age: 8 Year
  Sex: Female
  Weight: 40.8 kg

DRUGS (1)
  1. CEFDINIR [Suspect]
     Active Substance: CEFDINIR
     Indication: Product used for unknown indication
     Dosage: 12 MILLILITER, ONCE A DAY
     Route: 065
     Dates: start: 20230601, end: 20230605

REACTIONS (2)
  - Product storage error [Unknown]
  - Product administration error [Unknown]
